FAERS Safety Report 5872238-8 (Version None)
Quarter: 2008Q3

REPORT INFORMATION
  Report Type: 
  Country: None (occurrence: None)
  Receive Date: 20080905
  Receipt Date: 20080826
  Transmission Date: 20090109
  Serious: Yes (Other)
  Sender: FDA-Public Use
  Company Number: FR-ROCHE-583893

PATIENT
  Age: 33 Year
  Sex: Male

DRUGS (8)
  1. MYCOPHENOLATE MOFETIL [Suspect]
     Indication: PROPHYLAXIS AGAINST TRANSPLANT REJECTION
     Dosage: INDUCTION IMMUNOSUPPRESSION
     Route: 065
  2. MYCOPHENOLATE MOFETIL [Suspect]
     Dosage: MAINTENANCE IMMUNOSUPPRESSION
     Route: 065
  3. ANTILYMPHOCYTE IMMUNOGLOBULIN [Concomitant]
     Indication: PROPHYLAXIS AGAINST TRANSPLANT REJECTION
     Dosage: REPORTED AS POLYCLONAL ANTILYMPHOCYTE ANTIBODIES.  INDUCTION IMMUNOSUPPRESSION.
  4. TACROLIMUS [Concomitant]
     Indication: PROPHYLAXIS AGAINST TRANSPLANT REJECTION
     Dosage: INDUCTION IMMUNOSUPPRESSION
  5. TACROLIMUS [Concomitant]
     Dosage: MAINTENANCE IMMUNOSUPPRESSION
  6. PREDNISOLONE [Concomitant]
     Indication: PROPHYLAXIS AGAINST TRANSPLANT REJECTION
     Dosage: INDUCTION IMMUNOSUPPRESSION
  7. PREDNISOLONE [Concomitant]
     Dosage: MAINTENANCE IMMUNOSUPPRESSION
  8. PREDNISONE TAB [Concomitant]
     Dosage: MAINTENANCE IMMUNOSUPPRESSION.

REACTIONS (5)
  - HYPERGLYCAEMIA [None]
  - NAIL INJURY [None]
  - OEDEMA [None]
  - SERUM SICKNESS [None]
  - TRANSPLANT REJECTION [None]
